FAERS Safety Report 25567217 (Version 1)
Quarter: 2025Q3

REPORT INFORMATION
  Report Type: Spontaneous
  Country: EU (occurrence: EU)
  Receive Date: 20250716
  Receipt Date: 20250716
  Transmission Date: 20251020
  Serious: Yes (Other)
  Sender: PFIZER
  Company Number: None

PATIENT
  Sex: Male

DRUGS (3)
  1. HALCION [Suspect]
     Active Substance: TRIAZOLAM
  2. BROMAZEPAM [Suspect]
     Active Substance: BROMAZEPAM
  3. TRAMADOL [Suspect]
     Active Substance: TRAMADOL

REACTIONS (1)
  - Prescription form tampering [Unknown]

NARRATIVE: CASE EVENT DATE: 20250630
